FAERS Safety Report 5287051-2 (Version None)
Quarter: 2007Q1

REPORT INFORMATION
  Report Type: 
  Country: None (occurrence: None)
  Receive Date: 20070330
  Receipt Date: 20070319
  Transmission Date: 20070707
  Serious: Yes (Death, Hospitalization)
  Sender: FDA-Public Use
  Company Number: 238168

PATIENT
  Age: 68 Year
  Sex: Male
  Weight: 72.9 kg

DRUGS (24)
  1. BEVACIZUMAB(BEVACIZUMAB) PWDR + SOLVENT,INFUSION SOLN, 100MG [Suspect]
     Indication: NON-SMALL CELL LUNG CANCER
     Dosage: 1260 Q3W, INTRAVENOUS
     Route: 042
     Dates: start: 20060329
  2. BEVACIZUMAB(BEVACIZUMAB) PWDR + SOLVENT,INFUSION SOLN, 100MG [Suspect]
  3. BEVACIZUMAB(BEVACIZUMAB) PWDR + SOLVENT,INFUSION SOLN, 100MG [Suspect]
  4. DOCETAXEL(DOCETAXEL) [Suspect]
     Indication: NON-SMALL CELL LUNG CANCER
     Dosage: 135 MG, Q3W, INTRAVENOUS
     Route: 042
     Dates: start: 20060308
  5. CARBOPLATIN [Suspect]
     Indication: NON-SMALL CELL LUNG CANCER
     Dosage: 460 MG, Q3W, INTRAVENOUS
     Route: 042
     Dates: start: 20060308
  6. LOVASTATIN [Concomitant]
  7. ATENOLOL [Concomitant]
  8. LISINOPRIL [Concomitant]
  9. ASPIRIN [Concomitant]
  10. NITROSTAT [Concomitant]
  11. LANTUS [Concomitant]
  12. HUMALOG [Concomitant]
  13. TRAVATAN [Concomitant]
  14. BRIMONIDINE TARTRATE [Concomitant]
  15. COSOPT [Concomitant]
  16. HYDROCHLOROTHIAZIDE [Concomitant]
  17. WARFARIN SODIUM [Concomitant]
  18. DEXAMETHASONE TAB [Concomitant]
  19. MORPHINE [Concomitant]
  20. LORTAB [Concomitant]
  21. ASCORBIC ACID [Concomitant]
  22. SAW PALMETTO (SAW PALMETTO) [Concomitant]
  23. MULTIVITAMIN (MULTIVITAMINS NOS) [Concomitant]
  24. VITAMIN E [Concomitant]

REACTIONS (15)
  - ARTERIOSCLEROSIS [None]
  - ASTHENIA [None]
  - BACTERIA URINE IDENTIFIED [None]
  - BLOOD GLUCOSE INCREASED [None]
  - CEREBROVASCULAR DISORDER [None]
  - CONFUSIONAL STATE [None]
  - DEPRESSED LEVEL OF CONSCIOUSNESS [None]
  - DROOLING [None]
  - LEUKOENCEPHALOPATHY [None]
  - ORAL INTAKE REDUCED [None]
  - PLATELET COUNT DECREASED [None]
  - PROTEIN URINE PRESENT [None]
  - UNRESPONSIVE TO STIMULI [None]
  - URINE ANALYSIS ABNORMAL [None]
  - WHITE BLOOD CELLS URINE POSITIVE [None]
